FAERS Safety Report 9349916 (Version 1)
Quarter: 2013Q2

REPORT INFORMATION
  Report Type: Spontaneous
  Country: US (occurrence: US)
  Receive Date: 20130614
  Receipt Date: 20130614
  Transmission Date: 20140414
  Serious: Yes (Other)
  Sender: FDA-Public Use
  Company Number: CHPA2013US008913

PATIENT
  Age: 54 Year
  Sex: Female

DRUGS (7)
  1. EXCEDRIN EXTRA STRENGTH [Suspect]
     Indication: MIGRAINE
     Dosage: 1 DF, PRN
     Route: 048
  2. EXCEDRIN EXTRA STRENGTH [Suspect]
     Indication: HEADACHE
  3. EXCEDRIN MIGRAINE [Suspect]
     Indication: HEADACHE
     Dosage: UNK, UNK
     Route: 048
  4. EXCEDRIN MIGRAINE [Suspect]
     Indication: MIGRAINE
  5. ONDANSETRON [Concomitant]
     Indication: NAUSEA
     Dosage: UNK, UNK
     Route: 048
  6. GAS-X [Concomitant]
     Dosage: UNK, UNK
     Route: 048
  7. INSULIN [Concomitant]
     Indication: DIABETES MELLITUS
     Dosage: UNK, UNK

REACTIONS (4)
  - Diabetes mellitus [Not Recovered/Not Resolved]
  - Nervous system disorder [Not Recovered/Not Resolved]
  - Gastrointestinal disorder [Unknown]
  - Off label use [Unknown]
